FAERS Safety Report 9476853 (Version 1)
Quarter: 2013Q3

REPORT INFORMATION
  Report Type: Spontaneous
  Country: US (occurrence: US)
  Receive Date: 20130826
  Receipt Date: 20130826
  Transmission Date: 20140515
  Serious: Yes (Other)
  Sender: FDA-Public Use
  Company Number: US-ACTAVIS-2013-14475

PATIENT
  Age: 85 Year
  Sex: Male
  Weight: 84 kg

DRUGS (10)
  1. COLCHICINE (WATSON LABORATORIES) [Suspect]
     Indication: CHONDROCALCINOSIS PYROPHOSPHATE
     Dosage: 0.6 MG, EVERY OTHER DAY
     Route: 048
     Dates: start: 201103
  2. COLCHICINE (WATSON LABORATORIES) [Suspect]
     Dosage: 0.6 MG, DAILY
     Route: 048
  3. ACETAMINOPHEN [Concomitant]
     Indication: PAIN
     Dosage: 500-1000 MG EVERY FOUR TO SIX HOURS AS NEEDED
     Route: 048
  4. DOXAZOSIN [Concomitant]
     Indication: PRODUCT USED FOR UNKNOWN INDICATION
     Dosage: 2 MG, QHS
     Route: 048
  5. POLYSACCHARIDE-IRON COMPLEX [Concomitant]
     Indication: PRODUCT USED FOR UNKNOWN INDICATION
     Dosage: 150 MG, DAILY
     Route: 048
  6. OMEPRAZOLE [Concomitant]
     Indication: PRODUCT USED FOR UNKNOWN INDICATION
     Dosage: 20 MG, DAILY
     Route: 048
  7. TESTOSTERONE ENANTHATE [Concomitant]
     Indication: PRODUCT USED FOR UNKNOWN INDICATION
     Dosage: 200 MG,1/MONTH
     Route: 030
  8. RITUXIMAB [Concomitant]
     Indication: CHRONIC LYMPHOCYTIC LEUKAEMIA
     Dosage: UNK,AT DAY 1
     Route: 042
  9. BENDAMUSTINE [Concomitant]
     Indication: CHRONIC LYMPHOCYTIC LEUKAEMIA
     Dosage: UNK,AT DAY 1 AND 2
     Route: 042
  10. PEGFILGRASTIM [Concomitant]
     Indication: COLONY STIMULATING FACTOR THERAPY
     Dosage: UNK,AT DAY 3
     Route: 058

REACTIONS (1)
  - Leukopenia [Recovered/Resolved]
